FAERS Safety Report 17348056 (Version 7)
Quarter: 2021Q2

REPORT INFORMATION
  Report Type: Spontaneous
  Country: US (occurrence: US)
  Receive Date: 20200130
  Receipt Date: 20210416
  Transmission Date: 20210716
  Serious: No
  Sender: FDA-Public Use
  Company Number: US-GLAXOSMITHKLINE-US2020AMR012813

PATIENT
  Sex: Female

DRUGS (5)
  1. FLOLAN [Suspect]
     Active Substance: EPOPROSTENOL SODIUM
     Indication: PULMONARY ARTERIAL HYPERTENSION
     Dosage: 32.5 NG/KG/MIN, CO
     Dates: start: 20070111
  2. FLOLAN [Suspect]
     Active Substance: EPOPROSTENOL SODIUM
     Indication: PULMONARY ARTERIAL HYPERTENSION
     Dosage: 32.5 DF, CO, 32.5 NG/KG/MIN, CO
  3. REVATIO [Concomitant]
     Active Substance: SILDENAFIL CITRATE
     Indication: PRODUCT USED FOR UNKNOWN INDICATION
     Dosage: UNK
     Route: 065
  4. COUMADIN [Concomitant]
     Active Substance: WARFARIN SODIUM
     Indication: PRODUCT USED FOR UNKNOWN INDICATION
     Dosage: UNK
     Route: 065
  5. FLOLAN DILUENT PH 12 [Suspect]
     Active Substance: GLYCINE\MANNITOL\SODIUM CHLORIDE
     Indication: PULMONARY ARTERIAL HYPERTENSION
     Dosage: UNK
     Route: 065
     Dates: start: 20171228

REACTIONS (17)
  - Gastric disorder [Unknown]
  - Hyperhidrosis [Unknown]
  - Incorrect dose administered by device [Unknown]
  - Decreased appetite [Unknown]
  - Ear infection [Unknown]
  - Dizziness [Unknown]
  - Headache [Unknown]
  - Influenza like illness [Unknown]
  - Rhinorrhoea [Unknown]
  - Multiple allergies [Unknown]
  - Malaise [Unknown]
  - Feeling abnormal [Unknown]
  - Device delivery system issue [Unknown]
  - Migraine [Unknown]
  - Insomnia [Unknown]
  - Blood potassium decreased [Unknown]
  - Diarrhoea [Unknown]
